FAERS Safety Report 9059028 (Version 1)
Quarter: 2013Q1

REPORT INFORMATION
  Report Type: Spontaneous
  Country: US (occurrence: US)
  Receive Date: 20130211
  Receipt Date: 20130211
  Transmission Date: 20140127
  Serious: No
  Sender: FDA-Public Use
  Company Number: US-BRISTOL-MYERS SQUIBB COMPANY-16583775

PATIENT
  Age: 80 Year
  Sex: Female

DRUGS (2)
  1. METFORMIN HCL [Suspect]
     Indication: TYPE 2 DIABETES MELLITUS
     Route: 048
     Dates: start: 20031110, end: 20111207
  2. LANTUS [Concomitant]
     Dosage: AT NIGHT

REACTIONS (2)
  - Abdominal discomfort [Recovered/Resolved]
  - Weight decreased [Recovered/Resolved]
